FAERS Safety Report 8281984-0 (Version None)
Quarter: 2012Q2

REPORT INFORMATION
  Report Type: 
  Country: None (occurrence: None)
  Receive Date: 20120410
  Receipt Date: 20120328
  Transmission Date: 20120825
  Serious: Yes (Hospitalization)
  Sender: FDA-Public Use
  Company Number: 20120185

PATIENT
  Age: 72 Year
  Sex: Male

DRUGS (9)
  1. PAXIL [Concomitant]
  2. TRAZODONE HCL [Concomitant]
  3. SIMVATATIN [Concomitant]
  4. LEVOTHYROXINE SODIUM [Concomitant]
  5. AMIODARONE HCL [Concomitant]
  6. FOLIC ACID [Concomitant]
  7. METOPROLOL [Concomitant]
  8. ASPIRIN [Concomitant]
  9. VENOFER [Suspect]
     Indication: IRON DEFICIENCY ANAEMIA
     Dosage: 200 MG INTRAVENOUS
     Route: 042
     Dates: start: 20120123, end: 20120123

REACTIONS (3)
  - CHEST PAIN [None]
  - TYPE II HYPERSENSITIVITY [None]
  - TREMOR [None]
